FAERS Safety Report 5315488-1 (Version None)
Quarter: 2007Q2

REPORT INFORMATION
  Report Type: 
  Country: None (occurrence: None)
  Receive Date: 20070503
  Receipt Date: 20070427
  Transmission Date: 20071010
  Serious: Yes (Death, Hospitalization)
  Sender: FDA-Public Use
  Company Number: IT-BAYER-200712248GDS

PATIENT
  Age: 74 Year
  Sex: Male

DRUGS (13)
  1. SORAFENIB [Suspect]
     Indication: SARCOMA
     Dosage: TOTAL DAILY DOSE: 400 MG
     Route: 048
     Dates: start: 20070320, end: 20070330
  2. SORAFENIB [Suspect]
     Dosage: TOTAL DAILY DOSE: 800 MG
     Route: 048
     Dates: start: 20070308, end: 20070319
  3. OMEPRAZOLE [Concomitant]
     Indication: GASTRITIS PROPHYLAXIS
     Route: 048
  4. UNKNOWN [Concomitant]
     Indication: BLOOD PHOSPHORUS DECREASED
     Route: 048
     Dates: start: 20070321
  5. BROMAZEPAM [Concomitant]
     Indication: INSOMNIA
     Route: 048
  6. LASIX [Concomitant]
     Indication: FLUID RETENTION
     Route: 048
  7. MEDROL [Concomitant]
     Indication: PAIN
     Route: 048
  8. TRAMADOL HCL [Concomitant]
     Indication: PAIN
     Route: 048
  9. MORPHINE [Concomitant]
     Indication: ADVERSE EVENT
     Route: 065
  10. ROCEPHIN [Concomitant]
     Indication: ADVERSE EVENT
     Route: 065
  11. DIFLUCAN [Concomitant]
     Indication: ADVERSE EVENT
     Route: 065
  12. VANCOCINA [Concomitant]
     Indication: ADVERSE EVENT
     Route: 065
  13. CONCENTRATED PLATELETS TRANSFUSION [Concomitant]
     Indication: ADVERSE EVENT
     Route: 065

REACTIONS (4)
  - CARDIAC FAILURE [None]
  - GENERAL PHYSICAL HEALTH DETERIORATION [None]
  - HYPERPYREXIA [None]
  - SEPSIS [None]
